FAERS Safety Report 5781963-9 (Version None)
Quarter: 2008Q2

REPORT INFORMATION
  Report Type: 
  Country: None (occurrence: None)
  Receive Date: 20080623
  Receipt Date: 20080416
  Transmission Date: 20081010
  Serious: Yes (Other)
  Sender: FDA-Public Use
  Company Number: US-ASTRAZENECA-2008UW07822

PATIENT
  Age: 34 Year
  Sex: Male
  Weight: 95.3 kg

DRUGS (2)
  1. RHINOCORT [Suspect]
     Indication: SNORING
     Route: 045
     Dates: start: 20080201
  2. MIRAPEX [Concomitant]

REACTIONS (1)
  - EPISTAXIS [None]
